FAERS Safety Report 18507539 (Version 1)
Quarter: 2020Q4

REPORT INFORMATION
  Report Type: Spontaneous
  Country: US (occurrence: US)
  Receive Date: 20201116
  Receipt Date: 20201116
  Transmission Date: 20210114
  Serious: Yes (Hospitalization, Other)
  Sender: FDA-Public Use
  Company Number: US-PFIZER INC-2020445071

PATIENT
  Sex: Female
  Weight: 59.86 kg

DRUGS (2)
  1. GABAPENTIN. [Suspect]
     Active Substance: GABAPENTIN
     Dosage: UNK
  2. TRODELVY [Suspect]
     Active Substance: SACITUZUMAB GOVITECAN-HZIY
     Indication: TRIPLE NEGATIVE BREAST CANCER
     Dosage: UNK
     Dates: start: 202002

REACTIONS (4)
  - Neoplasm progression [Unknown]
  - Lung neoplasm [Recovering/Resolving]
  - Brain oedema [Unknown]
  - Muscle twitching [Recovered/Resolved]

NARRATIVE: CASE EVENT DATE: 201909
